FAERS Safety Report 19079882 (Version 1)
Quarter: 2021Q1

REPORT INFORMATION
  Report Type: Report from Study
  Country: BR (occurrence: BR)
  Receive Date: 20210331
  Receipt Date: 20210331
  Transmission Date: 20210420
  Serious: Yes (Other)
  Sender: FDA-Public Use
  Company Number: NVSC2021BR068637

PATIENT
  Sex: Female

DRUGS (4)
  1. RIBOCICLIB. [Concomitant]
     Active Substance: RIBOCICLIB
     Indication: PRODUCT USED FOR UNKNOWN INDICATION
     Dosage: 3 DAILYFOR 21 DAYS, AND 7?DAY BREAK
     Route: 065
     Dates: start: 20201226, end: 202102
  2. LETROZOLE. [Suspect]
     Active Substance: LETROZOLE
     Indication: PRODUCT USED FOR UNKNOWN INDICATION
     Dosage: UNK
     Route: 065
     Dates: start: 2018, end: 2020
  3. RIBOCICLIB. [Concomitant]
     Active Substance: RIBOCICLIB
     Dosage: 2 DAILY FOR 21 DAYS AND 7?DAY BREAK
     Route: 065
     Dates: start: 202103
  4. FASLODEX [Concomitant]
     Active Substance: FULVESTRANT
     Indication: PRODUCT USED FOR UNKNOWN INDICATION
     Dosage: EVERY 28 DAYS
     Route: 065

REACTIONS (1)
  - Metastases to bone [Not Recovered/Not Resolved]
